FAERS Safety Report 24237735 (Version 2)
Quarter: 2024Q3

REPORT INFORMATION
  Report Type: Report from Study
  Country: JP (occurrence: JP)
  Receive Date: 20240822
  Receipt Date: 20240926
  Transmission Date: 20241016
  Serious: Yes (Life-Threatening, Hospitalization, Other)
  Sender: NOVARTIS
  Company Number: JP-002147023-NVSJ2024JP009715

PATIENT
  Age: 7 Year
  Sex: Male

DRUGS (9)
  1. PROMACTA [Suspect]
     Active Substance: ELTROMBOPAG OLAMINE
     Indication: Aplastic anaemia
     Dosage: 12.5 MG
     Route: 048
     Dates: start: 20240112, end: 20240116
  2. PROMACTA [Suspect]
     Active Substance: ELTROMBOPAG OLAMINE
     Dosage: 37.5 MG
     Route: 048
     Dates: start: 20240117, end: 20240708
  3. NEORAL [Suspect]
     Active Substance: CYCLOSPORINE
     Indication: Aplastic anaemia
     Dosage: UNK
     Route: 048
     Dates: start: 20231113, end: 20240623
  4. FUROSEMIDE [Suspect]
     Active Substance: FUROSEMIDE
     Indication: Generalised oedema
     Dosage: UNK
     Route: 041
  5. ATGAM [Concomitant]
     Active Substance: EQUINE THYMOCYTE IMMUNE GLOBULIN
     Indication: Product used for unknown indication
     Dosage: UNK
     Route: 065
     Dates: start: 20231113, end: 20231116
  6. GASTER [Concomitant]
     Active Substance: FAMOTIDINE
     Indication: Product used for unknown indication
     Dosage: UNK
     Route: 065
     Dates: start: 20240112, end: 20240201
  7. SULFAMETHOXAZOLE\TRIMETHOPRIM [Concomitant]
     Active Substance: SULFAMETHOXAZOLE\TRIMETHOPRIM
     Indication: Product used for unknown indication
     Dosage: UNK
     Route: 065
     Dates: start: 20231016, end: 20240517
  8. DIFLUCAN [Concomitant]
     Active Substance: FLUCONAZOLE
     Indication: Product used for unknown indication
     Dosage: UNK
     Route: 065
     Dates: start: 20231221, end: 20240713
  9. CEFEPIME HYDROCHLORIDE [Concomitant]
     Active Substance: CEFEPIME HYDROCHLORIDE
     Indication: Product used for unknown indication
     Dosage: UNK
     Route: 065
     Dates: start: 20231016, end: 20240410

REACTIONS (11)
  - Sepsis [Recovered/Resolved]
  - Pyrexia [Unknown]
  - Hypoxia [Unknown]
  - Urine output decreased [Unknown]
  - Generalised oedema [Recovered/Resolved]
  - Hypokalaemia [Recovered/Resolved]
  - Platelet count decreased [Unknown]
  - Haemoglobin decreased [Unknown]
  - Neutrophil count decreased [Unknown]
  - Dental caries [Recovered/Resolved]
  - Gingivitis [Recovered/Resolved]

NARRATIVE: CASE EVENT DATE: 20240130
